FAERS Safety Report 21162187 (Version 5)
Quarter: 2023Q1

REPORT INFORMATION
  Report Type: Spontaneous
  Country: US (occurrence: US)
  Receive Date: 20220802
  Receipt Date: 20230316
  Transmission Date: 20230418
  Serious: No
  Sender: FDA-Public Use
  Company Number: US-BRISTOL-MYERS SQUIBB COMPANY-2022-083921

PATIENT
  Age: 54 Year
  Sex: Female

DRUGS (3)
  1. ZEPOSIA [Suspect]
     Active Substance: OZANIMOD HYDROCHLORIDE
     Indication: Multiple sclerosis
     Dosage: FREQ: DAILY
     Route: 048
     Dates: start: 20220510
  2. ZEPOSIA [Suspect]
     Active Substance: OZANIMOD HYDROCHLORIDE
     Dosage: FREQ: DAILY
     Route: 048
     Dates: start: 20220325
  3. ZEPOSIA [Suspect]
     Active Substance: OZANIMOD HYDROCHLORIDE
     Route: 048
     Dates: start: 20220503

REACTIONS (5)
  - Multiple sclerosis relapse [Unknown]
  - Oropharyngeal pain [Unknown]
  - Palpitations [Unknown]
  - Heart rate increased [Unknown]
  - Drug ineffective [Unknown]
